FAERS Safety Report 22220412 (Version 2)
Quarter: 2024Q1

REPORT INFORMATION
  Report Type: Report from Study
  Country: US (occurrence: US)
  Receive Date: 20230417
  Receipt Date: 20240319
  Transmission Date: 20240410
  Serious: Yes (Other)
  Sender: FDA-Public Use
  Company Number: US-TAKEDA-2022TUS005731

PATIENT
  Age: 70 Year
  Sex: Male

DRUGS (3)
  1. PONATINIB [Suspect]
     Active Substance: PONATINIB
     Indication: Acute lymphocytic leukaemia
     Dosage: 30 MILLIGRAM, QD
     Route: 065
     Dates: start: 20220123, end: 20221005
  2. PONATINIB [Suspect]
     Active Substance: PONATINIB
     Indication: Colon cancer
     Dosage: 45 MILLIGRAM, QD
     Route: 065
     Dates: start: 202303
  3. PONATINIB [Suspect]
     Active Substance: PONATINIB
     Dosage: 30 MILLIGRAM, QD
     Route: 048
     Dates: start: 20240304

REACTIONS (5)
  - Fungal skin infection [Unknown]
  - Acute lymphocytic leukaemia recurrent [Unknown]
  - Fracture [Unknown]
  - Product dose omission issue [Unknown]
  - Off label use [Unknown]

NARRATIVE: CASE EVENT DATE: 20240301
